FAERS Safety Report 5762986-2 (Version None)
Quarter: 2008Q2

REPORT INFORMATION
  Report Type: 
  Country: None (occurrence: None)
  Receive Date: 20080609
  Receipt Date: 20080530
  Transmission Date: 20081010
  Serious: Yes (Hospitalization)
  Sender: FDA-Public Use
  Company Number: JP-SANOFI-SYNTHELABO-F01200800936

PATIENT
  Sex: Male

DRUGS (5)
  1. MAGMITT [Concomitant]
     Dates: start: 20070821, end: 20071127
  2. AVASTIN [Suspect]
     Route: 041
     Dates: start: 20071127, end: 20071127
  3. ISOVORIN [Suspect]
     Route: 041
     Dates: start: 20071127, end: 20071127
  4. FLUOROURACIL [Suspect]
     Route: 042
     Dates: start: 20071127, end: 20071129
  5. ELPLAT [Suspect]
     Indication: COLON CANCER METASTATIC
     Route: 041
     Dates: start: 20071127, end: 20071127

REACTIONS (1)
  - ALTERED STATE OF CONSCIOUSNESS [None]
